FAERS Safety Report 21790189 (Version 2)
Quarter: 2023Q1

REPORT INFORMATION
  Report Type: Report from Study
  Country: US (occurrence: US)
  Receive Date: 20221228
  Receipt Date: 20230109
  Transmission Date: 20230417
  Serious: Yes (Hospitalization)
  Sender: FDA-Public Use
  Company Number: US-OTSUKA-2022_055934

PATIENT
  Age: 75 Year
  Sex: Male
  Weight: 74.5 kg

DRUGS (2)
  1. CEDAZURIDINE\DECITABINE [Suspect]
     Active Substance: CEDAZURIDINE\DECITABINE
     Indication: Prostatic disorder
     Dosage: 135 MG (35 MG/100 MG), QD (ON DAYS 1-4 OF EACH CYCLE)
     Route: 048
     Dates: start: 20221208
  2. ENZALUTAMIDE [Suspect]
     Active Substance: ENZALUTAMIDE
     Indication: Prostatic disorder
     Dosage: 160 MG, QD
     Route: 048
     Dates: start: 20201001

REACTIONS (3)
  - Diaphragmatic hernia [Unknown]
  - Atrial fibrillation [Unknown]
  - Pancreatitis [Unknown]

NARRATIVE: CASE EVENT DATE: 20221220
